FAERS Safety Report 6819805-2 (Version None)
Quarter: 2010Q3

REPORT INFORMATION
  Report Type: 
  Country: None (occurrence: None)
  Receive Date: 20100707
  Receipt Date: 20100630
  Transmission Date: 20110219
  Serious: Yes (Other)
  Sender: FDA-Public Use
  Company Number: CZ-AMGEN-QUU421345

PATIENT
  Age: 66 Year
  Sex: Female

DRUGS (6)
  1. NPLATE [Suspect]
     Indication: IDIOPATHIC THROMBOCYTOPENIC PURPURA
     Route: 058
     Dates: start: 20100602
  2. RILMENIDINE [Concomitant]
  3. MICARDIS [Concomitant]
  4. BISOPROLOL [Concomitant]
  5. AMLODIPINE [Concomitant]
  6. SERTRALINE [Concomitant]

REACTIONS (2)
  - PLATELET COUNT DECREASED [None]
  - THERAPEUTIC RESPONSE DECREASED [None]
